FAERS Safety Report 7933255-7 (Version None)
Quarter: 2011Q4

REPORT INFORMATION
  Report Type: 
  Country: None (occurrence: None)
  Receive Date: 20111121
  Receipt Date: 20111121
  Transmission Date: 20120403
  Serious: Yes (Other)
  Sender: FDA-Public Use
  Company Number: None

PATIENT
  Sex: Male

DRUGS (12)
  1. CYMBALTA [Suspect]
     Indication: MAJOR DEPRESSION
     Dosage: CYMBALTA BID PO
     Route: 048
     Dates: start: 20111001
  2. TRAMADOL HCL [Concomitant]
  3. QUINAPRIL [Concomitant]
  4. ASCORBIC ACID [Concomitant]
  5. FISH OIL [Concomitant]
  6. DONNATAL [Concomitant]
  7. METOPROLOL TARTRATE [Concomitant]
  8. ASPIRIN [Concomitant]
  9. PLAVIX [Concomitant]
  10. DIAZEPAM [Concomitant]
  11. PRAVASTATIN [Concomitant]
  12. MULTIVITAMIN [Concomitant]

REACTIONS (2)
  - PAIN IN EXTREMITY [None]
  - NO THERAPEUTIC RESPONSE [None]
